FAERS Safety Report 7518905-1 (Version None)
Quarter: 2011Q2

REPORT INFORMATION
  Report Type: 
  Country: None (occurrence: None)
  Receive Date: 20110602
  Receipt Date: 20110531
  Transmission Date: 20111010
  Serious: No
  Sender: FDA-Public Use
  Company Number: US-PFIZER INC-2011117512

PATIENT
  Sex: Female

DRUGS (1)
  1. VENLAFAXINE HCL [Suspect]
     Indication: DEPRESSION
     Dosage: 75 MG, 2X/DAY

REACTIONS (8)
  - ABNORMAL DREAMS [None]
  - DYSPEPSIA [None]
  - DIZZINESS [None]
  - AGGRESSION [None]
  - ANGER [None]
  - HEADACHE [None]
  - ANXIETY [None]
  - IRRITABILITY [None]
